FAERS Safety Report 17072156 (Version 1)
Quarter: 2019Q4

REPORT INFORMATION
  Report Type: Spontaneous
  Country: DE (occurrence: DE)
  Receive Date: 20191125
  Receipt Date: 20191125
  Transmission Date: 20200122
  Serious: Yes (Other)
  Sender: FDA-Public Use
  Company Number: DE-SEATTLE GENETICS-2019SGN04227

PATIENT
  Age: 80 Year
  Sex: Male

DRUGS (2)
  1. ADCETRIS [Suspect]
     Active Substance: BRENTUXIMAB VEDOTIN
     Dosage: 1.2 MG/KG, QCYCLE
     Route: 042
  2. ADCETRIS [Suspect]
     Active Substance: BRENTUXIMAB VEDOTIN
     Indication: CUTANEOUS T-CELL LYMPHOMA
     Dosage: 1.8 MG/KG, Q3WEEKS
     Route: 042

REACTIONS (5)
  - Blister [Recovered/Resolved]
  - Extravasation [Unknown]
  - Erythema [Recovered/Resolved]
  - Peripheral sensory neuropathy [Recovered/Resolved]
  - Demyelinating polyneuropathy [Unknown]
